FAERS Safety Report 4641907-X (Version None)
Quarter: 2005Q2

REPORT INFORMATION
  Report Type: 
  Country: None (occurrence: None)
  Receive Date: 20050420
  Receipt Date: 20050331
  Transmission Date: 20051028
  Serious: Yes (Hospitalization)
  Sender: FDA-Public Use
  Company Number: USA050494636

PATIENT
  Age: 58 Year
  Sex: Male

DRUGS (3)
  1. HUMATROPE [Suspect]
     Indication: BRAIN NEOPLASM
     Dates: start: 20000101
  2. PREDNISONE [Concomitant]
  3. FLOMAX [Concomitant]

REACTIONS (10)
  - ABASIA [None]
  - ARTHRALGIA [None]
  - FALL [None]
  - JOINT STIFFNESS [None]
  - MEDICAL DEVICE COMPLICATION [None]
  - MOVEMENT DISORDER [None]
  - PHARMACEUTICAL PRODUCT COMPLAINT [None]
  - POST PROCEDURAL COMPLICATION [None]
  - SCAR [None]
  - SURGICAL PROCEDURE REPEATED [None]
